FAERS Safety Report 5902531-1 (Version None)
Quarter: 2008Q3

REPORT INFORMATION
  Report Type: 
  Country: None (occurrence: None)
  Receive Date: 20080929
  Receipt Date: 20080924
  Transmission Date: 20090109
  Serious: Yes (Hospitalization)
  Sender: FDA-Public Use
  Company Number: GB-MERCK-0809GBR00116

PATIENT
  Age: 53 Year
  Sex: Male

DRUGS (2)
  1. DECADRON SRC [Suspect]
     Route: 048
  2. BORTEZOMIB [Suspect]
     Route: 048

REACTIONS (2)
  - LOWER RESPIRATORY TRACT INFECTION [None]
  - NEUTROPENIA [None]
